FAERS Safety Report 5022032-5 (Version None)
Quarter: 2006Q2

REPORT INFORMATION
  Report Type: 
  Country: None (occurrence: None)
  Receive Date: 20060609
  Receipt Date: 20060111
  Transmission Date: 20061013
  Serious: Yes (Other)
  Sender: FDA-Public Use
  Company Number: PHBS2006BR00744

PATIENT
  Age: 48 Year
  Sex: Female
  Weight: 70 kg

DRUGS (1)
  1. TOFRANIL [Suspect]
     Indication: BLADDER DISORDER
     Dosage: 25 MG, QD
     Route: 048
     Dates: start: 20060109, end: 20060110

REACTIONS (4)
  - HEAD DISCOMFORT [None]
  - HEADACHE [None]
  - HEMIPARESIS [None]
  - PHARMACEUTICAL PRODUCT COMPLAINT [None]
